FAERS Safety Report 8435818-1 (Version None)
Quarter: 2012Q2

REPORT INFORMATION
  Report Type: 
  Country: None (occurrence: None)
  Receive Date: 20120614
  Receipt Date: 20120605
  Transmission Date: 20120825
  Serious: Yes (Hospitalization)
  Sender: FDA-Public Use
  Company Number: US-ASTRAZENECA-2012SE16820

PATIENT
  Age: 50 Year
  Sex: Male

DRUGS (5)
  1. ZANTAC [Suspect]
     Route: 065
  2. NEXIUM [Suspect]
     Route: 048
  3. PEPCID [Concomitant]
  4. FAMOTIDINE [Concomitant]
  5. PRILOSEC [Suspect]
     Route: 048

REACTIONS (4)
  - HAEMATEMESIS [None]
  - EROSIVE OESOPHAGITIS [None]
  - HAEMOGLOBIN DECREASED [None]
  - GASTROOESOPHAGEAL REFLUX DISEASE [None]
